FAERS Safety Report 5287565-5 (Version None)
Quarter: 2007Q1

REPORT INFORMATION
  Report Type: 
  Country: None (occurrence: None)
  Receive Date: 20070126
  Receipt Date: 20061031
  Transmission Date: 20070707
  Serious: No
  Sender: FDA-Public Use
  Company Number: 2006CT000835

PATIENT
  Age: 43 Year
  Sex: Female
  Weight: 79.4 kg

DRUGS (6)
  1. VENTAVIS [Suspect]
     Indication: PULMONARY HYPERTENSION
     Dosage: 5 UG;7-9X/DAY;INH
     Route: 055
     Dates: start: 20060701
  2. ALDACTONE [Concomitant]
  3. WARFARIN SODIUM [Concomitant]
  4. LASIX [Concomitant]
  5. TYLENOL [Concomitant]
  6. SILDENAFIL CITRATE [Concomitant]

REACTIONS (4)
  - CHEST DISCOMFORT [None]
  - DYSPNOEA [None]
  - EPISTAXIS [None]
  - RENAL IMPAIRMENT [None]
